FAERS Safety Report 17770678 (Version 1)
Quarter: 2020Q2

REPORT INFORMATION
  Report Type: Spontaneous
  Country: US (occurrence: US)
  Receive Date: 20200512
  Receipt Date: 20200512
  Transmission Date: 20200714
  Serious: No
  Sender: FDA-Public Use
  Company Number: US-SA-2020SA115596

PATIENT
  Sex: Female

DRUGS (2)
  1. ELITEK [Suspect]
     Active Substance: RASBURICASE
  2. LIBTAYO [Suspect]
     Active Substance: CEMIPLIMAB-RWLC

REACTIONS (1)
  - Product storage error [Unknown]
